FAERS Safety Report 9117991 (Version 1)
Quarter: 2013Q1

REPORT INFORMATION
  Report Type: Report from Study
  Country: US (occurrence: US)
  Receive Date: 20130129
  Receipt Date: 20130129
  Transmission Date: 20140127
  Serious: No
  Sender: FDA-Public Use
  Company Number: US-ABBOTT-12P-163-0937293-00

PATIENT
  Age: 63 Year
  Sex: Female

DRUGS (18)
  1. HUMIRA 40 MG/0.8 ML PEN [Suspect]
     Indication: RHEUMATOID ARTHRITIS
     Dates: start: 20120408
  2. METOPROLOL [Concomitant]
     Indication: HYPERTENSION
  3. NITRO SPRAY [Concomitant]
     Indication: CHEST PAIN
  4. ARMOR THYROID [Concomitant]
     Indication: HYPOTHYROIDISM
  5. COZAAR [Concomitant]
     Indication: HYPERTENSION
  6. EFFEXOR [Concomitant]
     Indication: MOOD ALTERED
     Dosage: 225MG IN MORNING
  7. NEXIUM [Concomitant]
     Indication: GASTROOESOPHAGEAL REFLUX DISEASE
  8. FOLIC ACID [Concomitant]
     Indication: PRODUCT USED FOR UNKNOWN INDICATION
  9. SULFASALAZINE DR [Concomitant]
     Indication: PRODUCT USED FOR UNKNOWN INDICATION
  10. GABAPENTIN [Concomitant]
     Indication: NEUROPATHY PERIPHERAL
  11. GABAPENTIN [Concomitant]
     Indication: NEUROPATHY PERIPHERAL
  12. ALPRAZOLAM [Concomitant]
     Indication: PRODUCT USED FOR UNKNOWN INDICATION
  13. LEFLUNOMIDE [Concomitant]
     Indication: RHEUMATOID ARTHRITIS
     Dosage: 20MG AT NIGHT
  14. METHOCARBAMOL [Concomitant]
     Indication: HYPOTONIA
  15. GEMFIBROZIL [Concomitant]
     Indication: BLOOD GLUCOSE INCREASED
  16. NAPROXEN [Concomitant]
     Indication: MUSCLE DISORDER
  17. NAPROXEN [Concomitant]
     Indication: PAIN
  18. AMITRIPTYLINE/BACLOFEN CREAM [Concomitant]
     Indication: NEUROPATHY PERIPHERAL
     Dosage: RUBS ON FEET

REACTIONS (1)
  - Injection site pain [Recovering/Resolving]
